FAERS Safety Report 4276689-7 (Version None)
Quarter: 2004Q1

REPORT INFORMATION
  Report Type: 
  Country: None (occurrence: None)
  Receive Date: 20040120
  Receipt Date: 20040105
  Transmission Date: 20041129
  Serious: Yes (Hospitalization)
  Sender: FDA-Public Use
  Company Number: S04-FRA-00012-01

PATIENT
  Age: 52 Year
  Sex: Male

DRUGS (7)
  1. SEROPRAM (CITALOPRAM) [Suspect]
     Indication: DEPRESSION
     Dates: start: 20031011, end: 20031012
  2. SEROPRAM (CITALOPRAM HYDROBROMIDE) [Suspect]
     Indication: DEPRESSION
     Dates: start: 20031014, end: 20031015
  3. PROZAC [Concomitant]
     Indication: DEPRESSION
     Dosage: 20 MG QD PO
     Route: 048
     Dates: end: 20031010
  4. VASERETIC [Concomitant]
  5. OMIX (TAMSULOSIN HYDROCHLORIDE) [Concomitant]
  6. TENORMIN [Concomitant]
  7. AMARYL [Concomitant]

REACTIONS (10)
  - BLOOD CREATINE PHOSPHOKINASE INCREASED [None]
  - CHILLS [None]
  - DIARRHOEA [None]
  - MALAISE [None]
  - MUSCLE CONTRACTIONS INVOLUNTARY [None]
  - NAUSEA [None]
  - OVERDOSE [None]
  - PYREXIA [None]
  - SEROTONIN SYNDROME [None]
  - TACHYCARDIA [None]
